FAERS Safety Report 20663563 (Version 1)
Quarter: 2022Q2

REPORT INFORMATION
  Report Type: Spontaneous
  Country: US (occurrence: US)
  Receive Date: 20220401
  Receipt Date: 20220401
  Transmission Date: 20220721
  Serious: No
  Sender: FDA-Public Use
  Company Number: US-PFIZER INC-2021154051

PATIENT
  Age: 42 Year
  Sex: Female

DRUGS (4)
  1. EUCRISA [Suspect]
     Active Substance: CRISABOROLE
     Indication: Dermatitis atopic
     Dosage: UNK,  AS NEEDED (APPLY TO AFFECTED AREAS BID PRN/USE EUCRISA ON ALL AFFECTED AREAS ON OFF WEEKS)
  2. EUCRISA [Suspect]
     Active Substance: CRISABOROLE
     Indication: Dermatitis
  3. EUCRISA [Suspect]
     Active Substance: CRISABOROLE
     Indication: Eczema
  4. EUCRISA [Suspect]
     Active Substance: CRISABOROLE
     Indication: Xerosis

REACTIONS (3)
  - Therapeutic product effect incomplete [Unknown]
  - Melanocytic naevus [Unknown]
  - Off label use [Unknown]
